FAERS Safety Report 7503724-2 (Version None)
Quarter: 2011Q2

REPORT INFORMATION
  Report Type: 
  Country: None (occurrence: None)
  Receive Date: 20110525
  Receipt Date: 20110512
  Transmission Date: 20111010
  Serious: Yes (Other)
  Sender: FDA-Public Use
  Company Number: DE-AMGEN-DEUSP2011024529

PATIENT
  Age: 81 Year
  Sex: Male
  Weight: 74 kg

DRUGS (6)
  1. NPLATE [Suspect]
     Indication: PRODUCT USED FOR UNKNOWN INDICATION
     Dosage: UNK UNK, QWK
     Route: 058
     Dates: start: 20101029, end: 20110518
  2. TORSEMIDE [Concomitant]
     Indication: CARDIAC FAILURE
     Dosage: 10 MG, BID
     Route: 048
  3. INSUMAN BASAL [Concomitant]
     Indication: DIABETES MELLITUS
     Dosage: UNK UNK, BID
     Route: 058
  4. RAMIPRIL [Concomitant]
     Indication: CARDIAC FAILURE
     Dosage: UNK UNK, QD
     Route: 048
  5. BISOPROLOL FUMARATE [Concomitant]
     Indication: CARDIAC FAILURE
     Dosage: 10 MG, QD
     Route: 048
  6. METFORMIN HCL [Concomitant]
     Indication: DIABETES MELLITUS
     Dosage: UNK UNK, QD
     Route: 048

REACTIONS (2)
  - PLATELET COUNT ABNORMAL [None]
  - THERAPEUTIC RESPONSE DECREASED [None]
